FAERS Safety Report 9392585 (Version 1)
Quarter: 2013Q3

REPORT INFORMATION
  Report Type: Report from Study
  Country: DE (occurrence: DE)
  Receive Date: 20130710
  Receipt Date: 20130710
  Transmission Date: 20140515
  Serious: Yes (Hospitalization)
  Sender: FDA-Public Use
  Company Number: DE-009507513-1107DEU00080

PATIENT
  Age: 78 Year
  Sex: Female
  Weight: 64 kg

DRUGS (4)
  1. VORINOSTAT [Suspect]
     Indication: SARCOMA METASTATIC
     Dosage: 400 MG, QD
     Route: 048
     Dates: start: 20110622, end: 20110711
  2. L-THYROXIN [Concomitant]
     Dosage: 75 ?G, QD
     Route: 048
  3. ATENOLOL [Concomitant]
     Dosage: 100 MG, QD
     Route: 048
  4. HYDROCHLOROTHIAZIDE (+) TRIAMTERENE [Concomitant]
     Dosage: 25MG/50
     Route: 048

REACTIONS (1)
  - Aphasia [Recovered/Resolved with Sequelae]
